FAERS Safety Report 17394586 (Version 1)
Quarter: 2020Q1

REPORT INFORMATION
  Report Type: Spontaneous
  Country: TR (occurrence: TR)
  Receive Date: 20200210
  Receipt Date: 20200210
  Transmission Date: 20200409
  Serious: Yes (Death, Other)
  Sender: FDA-Public Use
  Company Number: TR-BAXTER-2020BAX002803

PATIENT
  Age: 6 Year
  Sex: Female

DRUGS (2)
  1. ENDOXAN 1G IV INFUZ. ICIN TOZ ICEREN FLAKON [Suspect]
     Active Substance: CYCLOPHOSPHAMIDE
     Indication: CONGENITAL RETINOBLASTOMA
     Route: 065
  2. VINCRISTINE [Suspect]
     Active Substance: VINCRISTINE
     Indication: CONGENITAL RETINOBLASTOMA
     Route: 065

REACTIONS (2)
  - Sarcoma [Not Recovered/Not Resolved]
  - Rhabdomyosarcoma [Fatal]
